FAERS Safety Report 24636839 (Version 1)
Quarter: 2024Q4

REPORT INFORMATION
  Report Type: Spontaneous
  Country: US (occurrence: US)
  Receive Date: 20241119
  Receipt Date: 20241119
  Transmission Date: 20250114
  Serious: No
  Sender: PAREXEL
  Company Number: US-Coherus Biosciences, Inc.-2024-COH-US000851

PATIENT

DRUGS (1)
  1. UDENYCA [Suspect]
     Active Substance: PEGFILGRASTIM-CBQV
     Indication: Prophylaxis
     Dosage: 6 MG
     Route: 058
     Dates: start: 202407

REACTIONS (4)
  - Device malfunction [Unknown]
  - Wrong technique in device usage process [Unknown]
  - Product communication issue [Unknown]
  - Product quality issue [Unknown]

NARRATIVE: CASE EVENT DATE: 20240817
